FAERS Safety Report 7226733-X (Version None)
Quarter: 2011Q1

REPORT INFORMATION
  Report Type: 
  Country: None (occurrence: None)
  Receive Date: 20110114
  Receipt Date: 20110105
  Transmission Date: 20110831
  Serious: Yes (Hospitalization)
  Sender: FDA-Public Use
  Company Number: DE-JNJFOC-20101205903

PATIENT
  Age: 84 Year
  Sex: Male
  Weight: 73 kg

DRUGS (5)
  1. RITONAVIR [Suspect]
     Indication: HIV INFECTION
     Route: 048
  2. ZIDOVUDINE [Concomitant]
     Route: 048
  3. PREZISTA [Suspect]
     Indication: HIV INFECTION
     Route: 048
  4. ETRAVIRINE [Suspect]
     Indication: HIV INFECTION
     Route: 048
  5. TRUVADA [Concomitant]
     Route: 048

REACTIONS (1)
  - RENAL FAILURE ACUTE [None]
